FAERS Safety Report 18113460 (Version 7)
Quarter: 2021Q4

REPORT INFORMATION
  Report Type: Spontaneous
  Country: US (occurrence: US)
  Receive Date: 20200805
  Receipt Date: 20211013
  Transmission Date: 20220304
  Serious: Yes (Hospitalization, Other)
  Sender: FDA-Public Use
  Company Number: US-PFIZER INC-2020295884

PATIENT
  Age: 69 Year
  Sex: Female

DRUGS (2)
  1. XELJANZ XR [Suspect]
     Active Substance: TOFACITINIB CITRATE
     Indication: Rheumatoid arthritis
     Dosage: 11 MG, DAILY
     Route: 048
     Dates: start: 20200801
  2. METHOTREXATE [Concomitant]
     Active Substance: METHOTREXATE
     Dosage: UNK

REACTIONS (12)
  - Thrombosis [Unknown]
  - Pneumoperitoneum [Unknown]
  - Salmonellosis [Unknown]
  - Vascular device infection [Unknown]
  - Abdominal discomfort [Recovered/Resolved]
  - Muscle spasms [Unknown]
  - Arthropathy [Unknown]
  - Joint swelling [Unknown]
  - Memory impairment [Unknown]
  - Product dose omission issue [Unknown]
  - Skin exfoliation [Unknown]
  - Sensitive skin [Unknown]

NARRATIVE: CASE EVENT DATE: 20200801
